FAERS Safety Report 5327869-0 (Version None)
Quarter: 2007Q2

REPORT INFORMATION
  Report Type: 
  Country: None (occurrence: None)
  Receive Date: 20070517
  Receipt Date: 20070514
  Transmission Date: 20071010
  Serious: Yes (Life-Threatening, Other)
  Sender: FDA-Public Use
  Company Number: FR-BRISTOL-MYERS SQUIBB COMPANY-13781695

PATIENT
  Age: 63 Year
  Sex: Female

DRUGS (7)
  1. GLUCOPHAGE [Suspect]
     Indication: DIABETES MELLITUS NON-INSULIN-DEPENDENT
     Route: 048
     Dates: start: 20061219, end: 20061226
  2. LORAZEPAM [Suspect]
     Route: 048
     Dates: start: 20061219
  3. XALATAN [Suspect]
     Dates: start: 20061219
  4. LEVEMIR [Suspect]
     Indication: DIABETES MELLITUS NON-INSULIN-DEPENDENT
     Route: 058
     Dates: start: 20061219
  5. NOVONORM [Suspect]
     Indication: DIABETES MELLITUS NON-INSULIN-DEPENDENT
     Route: 058
     Dates: start: 20061219
  6. NOROXIN [Concomitant]
     Dates: start: 20061219
  7. FORLAX [Concomitant]

REACTIONS (3)
  - DIABETIC KETOACIDOTIC HYPERGLYCAEMIC COMA [None]
  - LUNG INFECTION [None]
  - RENAL FAILURE [None]
